FAERS Safety Report 5473202-3 (Version None)
Quarter: 2007Q4

REPORT INFORMATION
  Report Type: 
  Country: None (occurrence: None)
  Receive Date: 20071001
  Receipt Date: 20070926
  Transmission Date: 20080405
  Serious: Yes (Life-Threatening)
  Sender: FDA-Public Use
  Company Number: FR-ASTRAZENECA-2007CG01360

PATIENT
  Age: 30324 Day
  Sex: Male

DRUGS (3)
  1. DIPRIVAN [Suspect]
     Indication: ANAESTHESIA
     Route: 042
     Dates: start: 20070604, end: 20070604
  2. SUFENTANIL MERCK [Suspect]
     Indication: ANAESTHESIA
     Route: 042
     Dates: start: 20070604, end: 20070604
  3. TRACRIUM [Suspect]
     Indication: ANAESTHESIA
     Route: 042
     Dates: start: 20070604, end: 20070604

REACTIONS (4)
  - ANAPHYLACTIC SHOCK [None]
  - BRONCHOSPASM [None]
  - CARDIO-RESPIRATORY ARREST [None]
  - GENERALISED ERYTHEMA [None]
